FAERS Safety Report 7790113-9 (Version None)
Quarter: 2011Q3

REPORT INFORMATION
  Report Type: 
  Country: None (occurrence: None)
  Receive Date: 20110930
  Receipt Date: 20110328
  Transmission Date: 20111222
  Serious: No
  Sender: FDA-Public Use
  Company Number: US-ASTRAZENECA-2010SE41975

PATIENT
  Age: 71 Year
  Sex: Female
  Weight: 50.8 kg

DRUGS (3)
  1. ARIMIDEX [Suspect]
     Indication: BREAST CANCER FEMALE
     Route: 048
     Dates: start: 20040101
  2. NEURONTIN [Concomitant]
  3. CRESTOR [Suspect]
     Indication: BLOOD CHOLESTEROL INCREASED
     Route: 048

REACTIONS (6)
  - HOT FLUSH [None]
  - DIARRHOEA [None]
  - DEPRESSION [None]
  - ANXIETY [None]
  - AMNESIA [None]
  - HEADACHE [None]
